FAERS Safety Report 17545425 (Version 1)
Quarter: 2020Q1

REPORT INFORMATION
  Report Type: Spontaneous
  Country: US (occurrence: US)
  Receive Date: 20200307
  Receipt Date: 20200307
  Transmission Date: 20200409
  Serious: No
  Sender: FDA-Public Use
  Company Number: None

PATIENT
  Age: 85 Year
  Sex: Female

DRUGS (1)
  1. OTREXUP [Suspect]
     Active Substance: METHOTREXATE
     Dosage: ?          OTHER
     Route: 058
     Dates: start: 20200130

REACTIONS (2)
  - Dizziness [None]
  - Somnolence [None]

NARRATIVE: CASE EVENT DATE: 20200229
